FAERS Safety Report 9029263 (Version 2)
Quarter: 2014Q3

REPORT INFORMATION
  Report Type: Spontaneous
  Country: BR (occurrence: BR)
  Receive Date: 20130125
  Receipt Date: 20140707
  Transmission Date: 20150326
  Serious: Yes (Other)
  Sender: FDA-Public Use
  Company Number: BR-AMGEN-BRASP2012039453

PATIENT
  Age: 50 Year
  Sex: Female
  Weight: 72 kg

DRUGS (1)
  1. ENBREL [Suspect]
     Active Substance: ETANERCEPT
     Indication: ANKYLOSING SPONDYLITIS
     Dosage: 50 MG, ONCE WEEKLY
     Route: 058
     Dates: start: 200903, end: 20140622

REACTIONS (10)
  - Diabetes mellitus [Recovered/Resolved]
  - Thyroid neoplasm [Unknown]
  - Injection site mass [Unknown]
  - Parotitis [Unknown]
  - Salivary gland neoplasm [Unknown]
  - Salivary gland disorder [Unknown]
  - Hordeolum [Unknown]
  - Urinary tract infection [Unknown]
  - Vasculitis [Unknown]
  - Pharyngitis [Unknown]

NARRATIVE: CASE EVENT DATE: 2011
